FAERS Safety Report 11410768 (Version 2)
Quarter: 2015Q3

REPORT INFORMATION
  Report Type: Spontaneous
  Country: US (occurrence: US)
  Receive Date: 20150821
  Receipt Date: 20150903
  Transmission Date: 20151125
  Serious: No
  Sender: FDA-Public Use
  Company Number: US-ELI_LILLY_AND_COMPANY-US200910000567

PATIENT
  Sex: Female

DRUGS (7)
  1. HUMALOG [Suspect]
     Active Substance: INSULIN LISPRO
     Dosage: 3 U, UNK
  2. HUMALOG [Suspect]
     Active Substance: INSULIN LISPRO
     Dosage: 10 U, UNK
  3. HUMALOG [Suspect]
     Active Substance: INSULIN LISPRO
     Dosage: UNK, UNK
     Route: 058
     Dates: end: 2008
  4. HUMULIN R [Suspect]
     Active Substance: INSULIN HUMAN
     Dosage: UNK, UNKNOWN
  5. HUMULIN R [Suspect]
     Active Substance: INSULIN HUMAN
     Route: 058
     Dates: start: 2000
  6. HUMALOG [Suspect]
     Active Substance: INSULIN LISPRO
     Dosage: UNK, AS NEEDED
     Dates: start: 2008
  7. LANTUS [Concomitant]
     Active Substance: INSULIN GLARGINE

REACTIONS (5)
  - Decreased activity [Unknown]
  - Blood glucose increased [Recovered/Resolved]
  - Vision blurred [Not Recovered/Not Resolved]
  - Glaucoma [Not Recovered/Not Resolved]
  - Drug ineffective [Recovered/Resolved]

NARRATIVE: CASE EVENT DATE: 1989
